FAERS Safety Report 11338280 (Version 1)
Quarter: 2015Q3

REPORT INFORMATION
  Report Type: Spontaneous
  Country: US (occurrence: US)
  Receive Date: 20150803
  Receipt Date: 20150803
  Transmission Date: 20151125
  Serious: No
  Sender: FDA-Public Use
  Company Number: US-ELI_LILLY_AND_COMPANY-US201008008412

PATIENT
  Age: 42 Year
  Sex: Female

DRUGS (5)
  1. ZYPREXA [Suspect]
     Active Substance: OLANZAPINE
     Indication: BIPOLAR DISORDER
     Dosage: 5 MG, UNKNOWN
     Route: 065
  2. KLONOPIN [Concomitant]
     Active Substance: CLONAZEPAM
  3. ZYPREXA [Suspect]
     Active Substance: OLANZAPINE
     Dosage: 3.75 MG, UNKNOWN
     Route: 065
  4. TENOLOL [Concomitant]
     Indication: TREMOR
  5. ZYPREXA [Suspect]
     Active Substance: OLANZAPINE
     Dosage: 2.5 MG, UNKNOWN
     Route: 065

REACTIONS (5)
  - Bradyphrenia [Unknown]
  - Wrong technique in product usage process [Unknown]
  - Nervousness [Unknown]
  - Paraesthesia oral [Unknown]
  - Pressure of speech [Unknown]
